FAERS Safety Report 17680751 (Version 2)
Quarter: 2020Q2

REPORT INFORMATION
  Report Type: Other
  Country: IT (occurrence: IT)
  Receive Date: 20200417
  Receipt Date: 20200505
  Transmission Date: 20200714
  Serious: Yes (Death, Life-Threatening, Hospitalization, Other)
  Sender: FDA-Public Use
  Company Number: IT-ALSI-202000153

PATIENT
  Age: 73 Year
  Sex: Male
  Weight: 86 kg

DRUGS (1)
  1. OXYGEN. [Suspect]
     Active Substance: OXYGEN
     Indication: CHRONIC RESPIRATORY FAILURE
     Route: 045

REACTIONS (3)
  - Air embolism [Fatal]
  - Cardio-respiratory arrest [Fatal]
  - Intercepted product administration error [Fatal]
